FAERS Safety Report 6639847-X (Version None)
Quarter: 2010Q1

REPORT INFORMATION
  Report Type: 
  Country: None (occurrence: None)
  Receive Date: 20100315
  Receipt Date: 20100301
  Transmission Date: 20100710
  Serious: Yes (Hospitalization)
  Sender: FDA-Public Use
  Company Number: 1000012427

PATIENT
  Age: 51 Year
  Sex: Male
  Weight: 64 kg

DRUGS (7)
  1. ESCITALOPRAM [Suspect]
     Indication: DEPRESSION
     Dosage: 10 MG, ORAL; 20 MG, ORAL; 30 MG, ORAL; 20 MG, ORAL; 30 MG, ORAL; 35 MG, ORAL
     Route: 048
     Dates: start: 20090305, end: 20090318
  2. ESCITALOPRAM [Suspect]
     Indication: DEPRESSION
     Dosage: 10 MG, ORAL; 20 MG, ORAL; 30 MG, ORAL; 20 MG, ORAL; 30 MG, ORAL; 35 MG, ORAL
     Route: 048
     Dates: start: 20090319, end: 20090416
  3. ESCITALOPRAM [Suspect]
     Indication: DEPRESSION
     Dosage: 10 MG, ORAL; 20 MG, ORAL; 30 MG, ORAL; 20 MG, ORAL; 30 MG, ORAL; 35 MG, ORAL
     Route: 048
     Dates: start: 20090416, end: 20090429
  4. ESCITALOPRAM [Suspect]
     Indication: DEPRESSION
     Dosage: 10 MG, ORAL; 20 MG, ORAL; 30 MG, ORAL; 20 MG, ORAL; 30 MG, ORAL; 35 MG, ORAL
     Route: 048
     Dates: start: 20090430, end: 20090518
  5. ESCITALOPRAM [Suspect]
     Indication: DEPRESSION
     Dosage: 10 MG, ORAL; 20 MG, ORAL; 30 MG, ORAL; 20 MG, ORAL; 30 MG, ORAL; 35 MG, ORAL
     Route: 048
     Dates: start: 20090519, end: 20090527
  6. ESCITALOPRAM [Suspect]
     Indication: DEPRESSION
     Dosage: 10 MG, ORAL; 20 MG, ORAL; 30 MG, ORAL; 20 MG, ORAL; 30 MG, ORAL; 35 MG, ORAL
     Route: 048
     Dates: start: 20090528, end: 20090624
  7. ESCITALOPRAM [Suspect]
     Indication: DEPRESSION
     Dosage: 40 MG, ORAL
     Route: 048
     Dates: start: 20090625, end: 20090901

REACTIONS (1)
  - ANKLE FRACTURE [None]
